FAERS Safety Report 7772648-8 (Version None)
Quarter: 2011Q3

REPORT INFORMATION
  Report Type: 
  Country: None (occurrence: None)
  Receive Date: 20110922
  Receipt Date: 20110518
  Transmission Date: 20111222
  Serious: No
  Sender: FDA-Public Use
  Company Number: US-ASTRAZENECA-2011SE30501

PATIENT
  Age: 68 Year
  Sex: Female
  Weight: 63.5 kg

DRUGS (4)
  1. CLONAZEPAM [Concomitant]
  2. SEROQUEL [Suspect]
     Indication: BIPOLAR DISORDER
     Route: 048
     Dates: start: 20110201, end: 20110401
  3. LAMICTAL [Concomitant]
  4. SEROQUEL [Suspect]
     Route: 048

REACTIONS (3)
  - CONFUSIONAL AROUSAL [None]
  - HYPERSOMNIA [None]
  - DIZZINESS [None]
